FAERS Safety Report 8829820 (Version 1)
Quarter: 2012Q4

REPORT INFORMATION
  Report Type: 
  Country: US (occurrence: US)
  Receive Date: 20121008
  Receipt Date: 20121008
  Transmission Date: 20130627
  Serious: No
  Sender: FDA-Public Use
  Company Number: US-ASTRAZENECA-2012SE73630

PATIENT
  Age: 45 Year
  Sex: Male
  Weight: 80.3 kg

DRUGS (3)
  1. CRESTOR [Suspect]
     Indication: BLOOD CHOLESTEROL ABNORMAL
     Route: 048
     Dates: start: 201209
  2. CYMBALTA [Concomitant]
     Indication: ATTENTION DEFICIT/HYPERACTIVITY DISORDER
  3. CYMBALTA [Concomitant]
     Indication: PAIN

REACTIONS (1)
  - Hypoaesthesia [Not Recovered/Not Resolved]
